FAERS Safety Report 4599292-8 (Version None)
Quarter: 2005Q1

REPORT INFORMATION
  Report Type: 
  Country: None (occurrence: None)
  Receive Date: 20050302
  Receipt Date: 20050302
  Transmission Date: 20050727
  Serious: Yes (Other)
  Sender: FDA-Public Use
  Company Number: None

PATIENT
  Age: 75 Year
  Sex: Male
  Weight: 91.2 kg

DRUGS (24)
  1. TRAVOPROST  0.004% OPH SOLN [Suspect]
  2. THEOPHYLLINE (INWOOD) [Concomitant]
  3. FELODIPINE [Concomitant]
  4. HYDRALAZINE [Concomitant]
  5. LANCET [Concomitant]
  6. METFORMIN HCL [Concomitant]
  7. SILDENAFIL CITRATE [Concomitant]
  8. ALBUTEROL [Concomitant]
  9. BRIMONIDINE TARTRATE [Concomitant]
  10. DORZOLAMIDE [Concomitant]
  11. METHAZOLAMIDE [Concomitant]
  12. ALLOPURINOL [Concomitant]
  13. IBUPROFEN [Concomitant]
  14. FLUTICAS 250/SALMETEROL 50 INHL DISK 60 [Concomitant]
  15. SIMVASTATIN [Concomitant]
  16. TRAVOPROST [Concomitant]
  17. GLYBURIDE [Concomitant]
  18. IRBESARTAN [Concomitant]
  19. RANITIDINE [Concomitant]
  20. TOLNAFTATE [Concomitant]
  21. UREA 20% CREAM [Concomitant]
  22. DORZOLAMIDE 2/TIMOLOL [Concomitant]
  23. PILOCARPINE HCL [Concomitant]
  24. GUAIFENESIN 100MG/5ML (ALC-F/SF) LIQUID [Concomitant]

REACTIONS (1)
  - UNEVALUABLE EVENT [None]
